FAERS Safety Report 16994702 (Version 1)
Quarter: 2019Q4

REPORT INFORMATION
  Report Type: Spontaneous
  Country: US (occurrence: US)
  Receive Date: 20191105
  Receipt Date: 20191105
  Transmission Date: 20200122
  Serious: Yes (Other)
  Sender: FDA-Public Use
  Company Number: US-CMP PHARMA-2019CMP00030

PATIENT
  Age: 72 Year
  Sex: Female

DRUGS (1)
  1. TRIAMCINOLONE [Suspect]
     Active Substance: TRIAMCINOLONE
     Indication: ENDOCRINE OPHTHALMOPATHY
     Dosage: INJECTED INTO THE LACRIMAL GLAND
     Route: 050

REACTIONS (4)
  - Arterial occlusive disease [Unknown]
  - Blindness [Unknown]
  - Incorrect route of product administration [Recovered/Resolved]
  - Retinal artery occlusion [Unknown]
